FAERS Safety Report 19707170 (Version 1)
Quarter: 2021Q3

REPORT INFORMATION
  Report Type: Spontaneous
  Country: US (occurrence: US)
  Receive Date: 20210816
  Receipt Date: 20210816
  Transmission Date: 20211014
  Serious: No
  Sender: FDA-Public Use
  Company Number: None

PATIENT
  Age: 73 Year
  Sex: Male

DRUGS (1)
  1. EMPAGLIFLOZIN (EMPAGLIFLOZIN 25MG TAB) [Suspect]
     Active Substance: EMPAGLIFLOZIN
     Indication: DIABETES MELLITUS
     Route: 048
     Dates: start: 20210322, end: 20210413

REACTIONS (6)
  - Blood glucose increased [None]
  - Blood creatinine increased [None]
  - Blood urea increased [None]
  - Hypotension [None]
  - Acute kidney injury [None]
  - Urosepsis [None]

NARRATIVE: CASE EVENT DATE: 20210402
